FAERS Safety Report 8587099-6 (Version None)
Quarter: 2012Q3

REPORT INFORMATION
  Report Type: 
  Country: None (occurrence: None)
  Receive Date: 20120810
  Receipt Date: 20120711
  Transmission Date: 20120928
  Serious: No
  Sender: FDA-Public Use
  Company Number: US-ASTRAZENECA-2012SE48226

PATIENT
  Age: 60 Year
  Sex: Female
  Weight: 64.9 kg

DRUGS (8)
  1. NEXIUM [Concomitant]
  2. FLUTICASONE PROPIONATE [Concomitant]
  3. PRAVASTATIN [Concomitant]
     Indication: BLOOD CHOLESTEROL
  4. PAIN MEDICATION [Concomitant]
  5. SPIRIVA [Concomitant]
  6. SYMBICORT [Suspect]
     Indication: CHRONIC OBSTRUCTIVE PULMONARY DISEASE
     Dosage: FREQUENCY UNKNOWN
     Route: 055
  7. AMLODIPINE BESYLATE [Concomitant]
     Indication: BLOOD PRESSURE ABNORMAL
  8. AZITHROMYCIN [Concomitant]
     Indication: ANTIBIOTIC THERAPY

REACTIONS (3)
  - PULMONARY MASS [None]
  - PYREXIA [None]
  - LUNG DISORDER [None]
